FAERS Safety Report 9263332 (Version 1)
Quarter: 2013Q2

REPORT INFORMATION
  Report Type: Spontaneous
  Country: US (occurrence: None)
  Receive Date: 20130429
  Receipt Date: 20130429
  Transmission Date: 20140414
  Serious: No
  Sender: FDA-Public Use
  Company Number: None

PATIENT
  Sex: Female
  Weight: 70.31 kg

DRUGS (1)
  1. TEKTURNA [Suspect]
     Indication: BLOOD PRESSURE
     Dates: start: 20121113

REACTIONS (5)
  - Dizziness [None]
  - Cough [None]
  - Dyspnoea [None]
  - Asthenia [None]
  - Movement disorder [None]
